FAERS Safety Report 13109888 (Version 1)
Quarter: 2017Q1

REPORT INFORMATION
  Report Type: Spontaneous
  Country: US (occurrence: US)
  Receive Date: 20170112
  Receipt Date: 20170112
  Transmission Date: 20170428
  Serious: Yes (Hospitalization)
  Sender: FDA-Public Use
  Company Number: US-ROCHE-1100502

PATIENT
  Age: 64 Year
  Sex: Male

DRUGS (6)
  1. ACTIVASE [Suspect]
     Active Substance: ALTEPLASE
     Indication: ACUTE MYOCARDIAL INFARCTION
     Route: 065
     Dates: start: 19900331
  2. HEPARIN [Concomitant]
     Active Substance: HEPARIN SODIUM
     Route: 041
  3. PERSANTINE [Concomitant]
     Active Substance: DIPYRIDAMOLE
     Route: 065
  4. CARDIZEM [Concomitant]
     Active Substance: DILTIAZEM HYDROCHLORIDE
     Route: 065
  5. MICRONASE [Concomitant]
     Active Substance: GLYBURIDE
     Route: 065
  6. ECOTRIN [Concomitant]
     Active Substance: ASPIRIN
     Route: 065

REACTIONS (1)
  - Ventricular arrhythmia [Recovered/Resolved]
